FAERS Safety Report 7589474-5 (Version None)
Quarter: 2011Q3

REPORT INFORMATION
  Report Type: 
  Country: None (occurrence: None)
  Receive Date: 20110705
  Receipt Date: 20110628
  Transmission Date: 20111222
  Serious: Yes (Death)
  Sender: FDA-Public Use
  Company Number: JP-ROCHE-780386

PATIENT
  Sex: Male
  Weight: 43 kg

DRUGS (18)
  1. ACTEMRA [Suspect]
     Route: 041
     Dates: start: 20100708, end: 20100908
  2. RHEUMATREX [Concomitant]
     Dosage: NOTE: AMOUNT 2
     Route: 048
     Dates: start: 20100108, end: 20100505
  3. ACTEMRA [Suspect]
     Route: 041
     Dates: start: 20100205, end: 20100205
  4. ACTEMRA [Suspect]
     Route: 041
     Dates: start: 20100108, end: 20100108
  5. ACTEMRA [Suspect]
     Route: 041
     Dates: start: 20100305, end: 20100305
  6. TS-1 [Concomitant]
     Dosage: FORM: PERORAL AGENT
     Route: 048
     Dates: start: 20080912, end: 20110325
  7. RHEUMATREX [Concomitant]
     Route: 048
     Dates: start: 20091019, end: 20100107
  8. RHEUMATREX [Concomitant]
     Route: 048
     Dates: start: 20100506, end: 20110106
  9. ACTEMRA [Suspect]
     Route: 041
     Dates: start: 20100603, end: 20100707
  10. PREDNISOLONE [Concomitant]
     Route: 048
     Dates: start: 20080101, end: 20110423
  11. FOLIC ACID [Concomitant]
     Dosage: DOSAGE FORM: PERORAL AGENT
     Route: 048
     Dates: start: 20091204, end: 20110423
  12. CISPLATIN [Concomitant]
     Route: 042
     Dates: start: 20080912, end: 20081101
  13. ACTEMRA [Suspect]
     Indication: RHEUMATOID ARTHRITIS
     Route: 041
     Dates: start: 20091106, end: 20091106
  14. ACTEMRA [Suspect]
     Route: 041
     Dates: start: 20091204, end: 20091204
  15. ACTEMRA [Suspect]
     Route: 041
     Dates: start: 20100401, end: 20100401
  16. ACTEMRA [Suspect]
     Route: 041
     Dates: start: 20100506, end: 20100506
  17. ACTEMRA [Suspect]
     Route: 041
     Dates: start: 20100909, end: 20110204
  18. TAXOTERE [Concomitant]
     Route: 042
     Dates: start: 20101101, end: 20110325

REACTIONS (1)
  - MALIGNANT ASCITES [None]
